FAERS Safety Report 5654727-4 (Version None)
Quarter: 2008Q1

REPORT INFORMATION
  Report Type: 
  Country: None (occurrence: None)
  Receive Date: 20080219
  Receipt Date: 20071025
  Transmission Date: 20080703
  Serious: No
  Sender: FDA-Public Use
  Company Number: WAES 0710USA04841

PATIENT
  Age: 52 Year
  Sex: Female

DRUGS (9)
  1. TAB JUNIVIA [Suspect]
     Indication: BLOOD GLUCOSE
     Dosage: 100 MG/DAILY/PO
     Route: 048
     Dates: start: 20070601, end: 20070801
  2. ACTOS [Concomitant]
  3. BENICAR [Concomitant]
  4. BENTYL [Concomitant]
  5. CELEBREX [Concomitant]
  6. MONOPRIL [Concomitant]
  7. NEURONTIN [Concomitant]
  8. ULTRAM [Concomitant]
  9. ZOCOR [Concomitant]

REACTIONS (1)
  - ARTHRALGIA [None]
